FAERS Safety Report 8503550-1 (Version None)
Quarter: 2012Q3

REPORT INFORMATION
  Report Type: 
  Country: None (occurrence: None)
  Receive Date: 20120702
  Receipt Date: 20120618
  Transmission Date: 20120928
  Serious: Yes (Hospitalization)
  Sender: FDA-Public Use
  Company Number: 2012-002237

PATIENT
  Age: 7 Year
  Sex: Male

DRUGS (9)
  1. TACROLIMUS [Concomitant]
  2. URSODIOL [Concomitant]
  3. ASACOL [Suspect]
     Dosage: , ORAL
     Route: 048
  4. NYSTATIN [Concomitant]
  5. PIPERACILLIN/TAZOBACTAM [Concomitant]
  6. OMEPRAZOLE [Concomitant]
  7. PREDNISOLONE [Concomitant]
  8. ACETAMINOPHEN [Concomitant]
  9. VALGANCICLOVIR HCL [Concomitant]

REACTIONS (3)
  - MEDICATION RESIDUE [None]
  - UNEVALUABLE EVENT [None]
  - OFF LABEL USE [None]
